FAERS Safety Report 10777213 (Version 1)
Quarter: 2015Q1

REPORT INFORMATION
  Report Type: Spontaneous
  Country: US (occurrence: None)
  Receive Date: 20150206
  Receipt Date: 20150206
  Transmission Date: 20150721
  Serious: Yes (Other)
  Sender: FDA-Public Use
  Company Number: None

PATIENT
  Age: 59 Year
  Sex: Female
  Weight: 90.72 kg

DRUGS (2)
  1. ALBENZA [Suspect]
     Active Substance: ALBENDAZOLE
     Indication: ANAEMIA
     Dosage: 2 TABLETS THREE TIMES DAILY TAKEN BY MOUTH
     Route: 048
     Dates: start: 20141111, end: 20141125
  2. ALBENZA [Suspect]
     Active Substance: ALBENDAZOLE
     Dosage: 2 TABLETS THREE TIMES DAILY TAKEN BY MOUTH
     Route: 048
     Dates: start: 20141111, end: 20141125

REACTIONS (1)
  - Alopecia [None]

NARRATIVE: CASE EVENT DATE: 20141202
